APPROVED DRUG PRODUCT: CAFFEINE CITRATE
Active Ingredient: CAFFEINE CITRATE
Strength: EQ 30MG BASE/3ML (EQ 10MG BASE/ML)
Dosage Form/Route: SOLUTION;INTRAVENOUS
Application: A090827 | Product #001 | TE Code: AP
Applicant: SAGENT PHARMACEUTICALS INC
Approved: Aug 29, 2012 | RLD: No | RS: No | Type: RX